FAERS Safety Report 9553697 (Version 5)
Quarter: 2013Q4

REPORT INFORMATION
  Report Type: Report from Study
  Country: CA (occurrence: CA)
  Receive Date: 20130925
  Receipt Date: 20131203
  Transmission Date: 20140711
  Serious: Yes (Hospitalization, Other)
  Sender: FDA-Public Use
  Company Number: CA-ABBVIE-12P-028-0945195-00

PATIENT
  Age: 78 Year
  Sex: Female
  Weight: 70.37 kg

DRUGS (4)
  1. HUMIRA [Suspect]
     Indication: CROHN^S DISEASE
     Route: 058
     Dates: start: 20120227
  2. HUMIRA [Suspect]
     Route: 058
  3. ISONIAZID [Concomitant]
     Indication: CROHN^S DISEASE
     Route: 048
  4. JAMP VITAMIN B16 [Concomitant]
     Indication: SUPPLEMENTATION THERAPY

REACTIONS (10)
  - Bladder prolapse [Not Recovered/Not Resolved]
  - Urinary bladder haemorrhage [Unknown]
  - Bladder prolapse [Unknown]
  - Anaemia [Unknown]
  - Haemorrhage [Not Recovered/Not Resolved]
  - Urinary tract infection [Recovered/Resolved]
  - Hernia [Unknown]
  - Calculus urinary [Unknown]
  - Medical device removal [Unknown]
  - Chromaturia [Unknown]
